FAERS Safety Report 8517048-8 (Version None)
Quarter: 2012Q2

REPORT INFORMATION
  Report Type: 
  Country: None (occurrence: None)
  Receive Date: 20120406
  Receipt Date: 20100910
  Transmission Date: 20120825
  Serious: Yes (Hospitalization)
  Sender: FDA-Public Use
  Company Number: PHHY2010US60542

PATIENT
  Sex: Female

DRUGS (5)
  1. METOPROLOL TARTRATE [Concomitant]
  2. TASIGNA [Suspect]
     Indication: CHRONIC MYELOID LEUKAEMIA
     Dosage: 400 UNK, BID, ORAL
     Route: 048
     Dates: start: 20100720
  3. LASOTEL (LASOTEL) [Concomitant]
  4. CRESTOR [Concomitant]
  5. VICODIN [Concomitant]

REACTIONS (1)
  - DIARRHOEA [None]
